FAERS Safety Report 16538325 (Version 1)
Quarter: 2019Q3

REPORT INFORMATION
  Report Type: Spontaneous
  Country: US (occurrence: US)
  Receive Date: 20190708
  Receipt Date: 20190708
  Transmission Date: 20191004
  Serious: No
  Sender: FDA-Public Use
  Company Number: PHEH2019US028186

PATIENT
  Sex: Female

DRUGS (3)
  1. PILOCARPINE. [Suspect]
     Active Substance: PILOCARPINE
     Indication: GLAUCOMA
     Route: 065
  2. BRIMONIDINE TARTRATE. [Suspect]
     Active Substance: BRIMONIDINE TARTRATE
     Indication: GLAUCOMA
     Route: 065
  3. TRAVATAN [Concomitant]
     Active Substance: TRAVOPROST
     Indication: CATARACT OPERATION COMPLICATION
     Route: 065

REACTIONS (2)
  - Mydriasis [Unknown]
  - Apraxia [Unknown]
